FAERS Safety Report 6409278-6 (Version None)
Quarter: 2009Q4

REPORT INFORMATION
  Report Type: 
  Country: None (occurrence: None)
  Receive Date: 20091021
  Receipt Date: 20091013
  Transmission Date: 20100525
  Serious: Yes (Other)
  Sender: FDA-Public Use
  Company Number: US-AMGEN-QUU365333

PATIENT
  Sex: Male
  Weight: 88.5 kg

DRUGS (4)
  1. ENBREL [Suspect]
     Indication: RHEUMATOID ARTHRITIS
     Route: 030
     Dates: start: 20090201, end: 20090801
  2. HYDROCODONE [Concomitant]
  3. CELEBREX [Concomitant]
     Dates: end: 20090801
  4. VIAGRA [Concomitant]

REACTIONS (1)
  - PAROTID GLAND INFLAMMATION [None]
